FAERS Safety Report 15053178 (Version 1)
Quarter: 2018Q3

REPORT INFORMATION
  Report Type: Spontaneous
  Country: JP (occurrence: JP)
  Receive Date: 20180622
  Receipt Date: 20180622
  Transmission Date: 20181010
  Serious: Yes (Death, Other)
  Sender: FDA-Public Use
  Company Number: JP-SUCAMPO PHARMACEUTICALS INC.-SPI201800570

PATIENT
  Age: 79 Year
  Sex: Male

DRUGS (6)
  1. URIEF [Suspect]
     Active Substance: SILODOSIN
     Dosage: UNK
     Route: 048
     Dates: end: 20180617
  2. RINDERON                           /00008501/ [Suspect]
     Active Substance: BETAMETHASONE
     Indication: MALAISE
     Dosage: UNK
     Route: 048
     Dates: start: 20180531, end: 20180617
  3. AMITIZA [Suspect]
     Active Substance: LUBIPROSTONE
     Indication: CONSTIPATION
     Dosage: UNK
     Route: 048
     Dates: start: 20180531, end: 20180617
  4. RESTREAM [Suspect]
     Active Substance: TAMSULOSIN HYDROCHLORIDE
     Indication: DYSURIA
     Dosage: UNK
     Route: 048
     Dates: start: 20180531, end: 20180617
  5. OXYCONTIN [Suspect]
     Active Substance: OXYCODONE HYDROCHLORIDE
     Indication: CANCER PAIN
     Dosage: UNK
     Route: 048
     Dates: start: 20180531, end: 20180617
  6. FAMOTIDINE. [Suspect]
     Active Substance: FAMOTIDINE
     Dosage: UNK
     Route: 048
     Dates: end: 20180617

REACTIONS (2)
  - Eructation [Recovered/Resolved]
  - Neoplasm malignant [Fatal]

NARRATIVE: CASE EVENT DATE: 20180604
